FAERS Safety Report 8205133-X (Version None)
Quarter: 2012Q1

REPORT INFORMATION
  Report Type: 
  Country: None (occurrence: None)
  Receive Date: 20120313
  Receipt Date: 20120306
  Transmission Date: 20120608
  Serious: Yes (Hospitalization)
  Sender: FDA-Public Use
  Company Number: US-GLAXOSMITHKLINE-A0969287A

PATIENT
  Age: 45 Year
  Sex: Male
  Weight: 112.5 kg

DRUGS (3)
  1. COUMADIN [Concomitant]
  2. FLOLAN [Suspect]
     Indication: PULMONARY HYPERTENSION
     Dosage: 26NGKM SEE DOSAGE TEXT
     Route: 042
     Dates: start: 20020610, end: 20120304
  3. TRACLEER [Concomitant]

REACTIONS (1)
  - HOSPITALISATION [None]
